FAERS Safety Report 7222757-7 (Version None)
Quarter: 2011Q1

REPORT INFORMATION
  Report Type: 
  Country: None (occurrence: None)
  Receive Date: 20110106
  Receipt Date: 20110106
  Transmission Date: 20110831
  Serious: Yes (Other)
  Sender: FDA-Public Use
  Company Number: None

PATIENT
  Sex: Female
  Weight: 87.9978 kg

DRUGS (2)
  1. PLAQUENIL [Concomitant]
  2. HYDROXYCHLOROQUININE HYDROXYCHLOROQUINE [Suspect]
     Indication: INFLAMMATION
     Dosage: 200 MG 1 BID PO
     Route: 048
     Dates: start: 20050701

REACTIONS (3)
  - RASH [None]
  - ARTHRALGIA [None]
  - PRURITUS [None]
